FAERS Safety Report 10560924 (Version 1)
Quarter: 2014Q4

REPORT INFORMATION
  Report Type: Spontaneous
  Country: US (occurrence: US)
  Receive Date: 20141103
  Receipt Date: 20141103
  Transmission Date: 20150529
  Serious: No
  Sender: FDA-Public Use
  Company Number: US-ELI_LILLY_AND_COMPANY-US201410009757

PATIENT
  Age: 78 Year
  Sex: Female

DRUGS (3)
  1. LANTUS [Concomitant]
     Active Substance: INSULIN GLARGINE
     Dosage: 5 U, EACH MORNING
     Route: 065
  2. HUMALOG [Suspect]
     Active Substance: INSULIN LISPRO
     Indication: TYPE 1 DIABETES MELLITUS
     Dosage: UNK, PRN
     Route: 065
     Dates: start: 1996
  3. LANTUS [Concomitant]
     Active Substance: INSULIN GLARGINE
     Dosage: 8 U, EACH EVENING
     Route: 065

REACTIONS (3)
  - Drug dose omission [Unknown]
  - Blood glucose increased [Unknown]
  - Blood glucose fluctuation [Unknown]

NARRATIVE: CASE EVENT DATE: 20141022
